FAERS Safety Report 8935977 (Version 2)
Quarter: 2012Q4

REPORT INFORMATION
  Report Type: 
  Country: US (occurrence: US)
  Receive Date: 20121130
  Receipt Date: 20121205
  Transmission Date: 20130627
  Serious: No
  Sender: FDA-Public Use
  Company Number: US-009507513-1211USA012263

PATIENT
  Age: 78 Year
  Sex: Male
  Weight: 80.27 kg

DRUGS (8)
  1. CLARITIN-D [Suspect]
     Indication: SINUS DISORDER
     Dosage: 10 mg, qam
     Route: 048
     Dates: start: 20121008, end: 20121009
  2. CLARITIN-D [Suspect]
     Indication: SEASONAL ALLERGY
  3. LUMIGAN [Concomitant]
     Indication: GLAUCOMA
     Dosage: UNK, Unknown
     Route: 047
  4. LOVASTATIN [Concomitant]
     Indication: BLOOD CHOLESTEROL
     Dosage: UNK, Unknown
  5. NIACIN [Concomitant]
     Indication: BLOOD CHOLESTEROL
     Dosage: UNK, Unknown
  6. ASPIRIN [Concomitant]
     Indication: PRODUCT USED FOR UNKNOWN INDICATION
     Dosage: 81 mg, qd
  7. VITAMIN B COMPLEX [Concomitant]
     Indication: PRODUCT USED FOR UNKNOWN INDICATION
     Dosage: UNK, Unknown
  8. VITAMIN D (UNSPECIFIED) [Concomitant]
     Indication: PRODUCT USED FOR UNKNOWN INDICATION
     Dosage: UNK, Unknown

REACTIONS (1)
  - Constipation [Not Recovered/Not Resolved]
